FAERS Safety Report 6543731-X (Version None)
Quarter: 2010Q1

REPORT INFORMATION
  Report Type: 
  Country: None (occurrence: None)
  Receive Date: 20100120
  Receipt Date: 20100112
  Transmission Date: 20100710
  Serious: Yes (Other)
  Sender: FDA-Public Use
  Company Number: JP-ASTRAZENECA-2009SE23306

PATIENT
  Age: 20733 Day
  Sex: Male
  Weight: 65 kg

DRUGS (3)
  1. CRESTOR [Suspect]
     Indication: HYPERCHOLESTEROLAEMIA
     Route: 048
     Dates: start: 20081219, end: 20091027
  2. BLOPRESS [Suspect]
     Indication: HYPERTENSION
     Route: 048
     Dates: start: 20081110, end: 20091102
  3. ZYLORIC [Suspect]
     Indication: HYPERURICAEMIA
     Route: 048
     Dates: start: 20080908, end: 20091102

REACTIONS (3)
  - LEUKOPENIA [None]
  - LIVER DISORDER [None]
  - THROMBOCYTOPENIA [None]
